FAERS Safety Report 10345810 (Version 1)
Quarter: 2014Q3

REPORT INFORMATION
  Report Type: Spontaneous
  Country: US (occurrence: None)
  Receive Date: 20140723
  Receipt Date: 20140723
  Transmission Date: 20150326
  Serious: No
  Sender: FDA-Public Use
  Company Number: CC 14-0697

PATIENT
  Age: 26 Year
  Sex: Female

DRUGS (2)
  1. SULFACETAMIDE [Concomitant]
     Active Substance: SULFACETAMIDE
  2. ADAPALENE GEL [Suspect]
     Active Substance: ADAPALENE
     Indication: ACNE

REACTIONS (3)
  - Skin burning sensation [None]
  - Skin disorder [None]
  - Skin wrinkling [None]
